FAERS Safety Report 4877758-0 (Version None)
Quarter: 2006Q1

REPORT INFORMATION
  Report Type: 
  Country: None (occurrence: None)
  Receive Date: 20060111
  Receipt Date: 20050713
  Transmission Date: 20060701
  Serious: Yes (Hospitalization, Disabling)
  Sender: FDA-Public Use
  Company Number: US-MERCK-0507USA01815

PATIENT
  Age: 48 Year
  Sex: Male
  Weight: 77 kg

DRUGS (5)
  1. VIOXX [Suspect]
     Indication: INTERVERTEBRAL DISC DISORDER
     Route: 048
     Dates: start: 19990101, end: 20040101
  2. TRICOR [Concomitant]
     Route: 065
  3. ASPIRIN [Concomitant]
     Route: 065
  4. CATAPRES [Concomitant]
     Route: 065
  5. TRANXENE [Concomitant]
     Route: 065

REACTIONS (5)
  - ANXIETY [None]
  - BACK DISORDER [None]
  - CARDIAC DISORDER [None]
  - CEREBROVASCULAR ACCIDENT [None]
  - PROSTATIC DISORDER [None]
